FAERS Safety Report 10083713 (Version 1)
Quarter: 2014Q2

REPORT INFORMATION
  Report Type: Spontaneous
  Country: US (occurrence: US)
  Receive Date: 20140417
  Receipt Date: 20140417
  Transmission Date: 20141212
  Serious: No
  Sender: FDA-Public Use
  Company Number: US-PFIZER INC-2014108055

PATIENT
  Sex: Female

DRUGS (3)
  1. CELEBREX [Suspect]
     Dosage: UNK
  2. PREVACID [Concomitant]
     Indication: GASTRIC DISORDER
     Dosage: UNK
  3. CELEXA [Concomitant]
     Indication: ANTIDEPRESSANT THERAPY
     Dosage: UNK

REACTIONS (3)
  - Asthma [Unknown]
  - Nasopharyngitis [Unknown]
  - Arthralgia [Unknown]
